FAERS Safety Report 11844394 (Version 2)
Quarter: 2016Q1

REPORT INFORMATION
  Report Type: Report from Study
  Country: AR (occurrence: AR)
  Receive Date: 20151217
  Receipt Date: 20160318
  Transmission Date: 20160526
  Serious: Yes (Other)
  Sender: FDA-Public Use
  Company Number: PHHY2015AR164241

PATIENT
  Age: 59 Year
  Sex: Female

DRUGS (1)
  1. GLIVEC [Suspect]
     Active Substance: IMATINIB MESYLATE
     Indication: PRODUCT USED FOR UNKNOWN INDICATION
     Dosage: 400 MG, QD
     Route: 048

REACTIONS (5)
  - Therapeutic response decreased [Not Recovered/Not Resolved]
  - Bacterial infection [Recovering/Resolving]
  - Fall [Recovering/Resolving]
  - Stress [Unknown]
  - Herpes virus infection [Recovering/Resolving]

NARRATIVE: CASE EVENT DATE: 201511
